FAERS Safety Report 10570587 (Version 1)
Quarter: 2014Q4

REPORT INFORMATION
  Report Type: Spontaneous
  Country: US (occurrence: None)
  Receive Date: 20141106
  Receipt Date: 20141106
  Transmission Date: 20150529
  Serious: Yes (Life-Threatening, Hospitalization)
  Sender: FDA-Public Use
  Company Number: None

PATIENT
  Age: 18 Year
  Sex: Male
  Weight: 77.11 kg

DRUGS (1)
  1. MINOCYCLINE [Suspect]
     Active Substance: MINOCYCLINE\MINOCYCLINE HYDROCHLORIDE
     Indication: ACNE

REACTIONS (5)
  - Ocular icterus [None]
  - Chromaturia [None]
  - Hepatic enzyme increased [None]
  - Decreased appetite [None]
  - Yellow skin [None]

NARRATIVE: CASE EVENT DATE: 20141016
